FAERS Safety Report 9443625 (Version 1)
Quarter: 2013Q3

REPORT INFORMATION
  Report Type: Report from Study
  Country: DE (occurrence: DE)
  Receive Date: 20130806
  Receipt Date: 20130806
  Transmission Date: 20140515
  Serious: Yes (Other)
  Sender: FDA-Public Use
  Company Number: DE-CELGENEUS-062-C4047-11031330

PATIENT
  Sex: 0

DRUGS (2)
  1. CC-4047 [Suspect]
     Indication: MYELOPROLIFERATIVE DISORDER
     Dosage: 2 MILLIGRAM
     Route: 048
  2. ASPIRINE [Concomitant]
     Indication: THROMBOSIS PROPHYLAXIS
     Dosage: 100 MILLIGRAM
     Route: 065

REACTIONS (11)
  - General physical health deterioration [Unknown]
  - Hypertension [Unknown]
  - Embolism [Unknown]
  - Lung infection [Unknown]
  - Rash [Unknown]
  - Cardiac failure [Unknown]
  - Blast cell crisis [Unknown]
  - Toxicity to various agents [Unknown]
  - Fatigue [Unknown]
  - Thrombocytopenia [Unknown]
  - Neutropenia [Unknown]
